FAERS Safety Report 4721730-8 (Version None)
Quarter: 2005Q3

REPORT INFORMATION
  Report Type: 
  Country: None (occurrence: None)
  Receive Date: 20050721
  Receipt Date: 20050318
  Transmission Date: 20060218
  Serious: No
  Sender: FDA-Public Use
  Company Number: US-BRISTOL-MYERS SQUIBB COMPANY-12903472

PATIENT
  Age: 74 Year
  Sex: Male
  Weight: 79 kg

DRUGS (4)
  1. COUMADIN [Suspect]
     Indication: HEART RATE IRREGULAR
     Dosage: ON VARYING DOSES 5 YRS. AGO; THEN 2MG, 1 TAB X 3DAYS/WEEK + 2MG, 2 TABS X 4 DAYS/WEEK;7MG X 1 DAY.
     Route: 048
  2. DIGOXIN [Concomitant]
  3. ZOCOR [Concomitant]
  4. DILTIAZEM HCL [Concomitant]

REACTIONS (1)
  - INTERNATIONAL NORMALISED RATIO FLUCTUATION [None]
